FAERS Safety Report 7170346-5 (Version None)
Quarter: 2010Q4

REPORT INFORMATION
  Report Type: 
  Country: None (occurrence: None)
  Receive Date: 20101217
  Receipt Date: 20100519
  Transmission Date: 20110411
  Serious: No
  Sender: FDA-Public Use
  Company Number: A0862904A

PATIENT
  Sex: Female

DRUGS (1)
  1. AVANDARYL [Suspect]
     Route: 065

REACTIONS (2)
  - DYSPHONIA [None]
  - THROAT IRRITATION [None]
